FAERS Safety Report 23055932 (Version 1)
Quarter: 2023Q4

REPORT INFORMATION
  Report Type: Spontaneous
  Country: US (occurrence: US)
  Receive Date: 20231011
  Receipt Date: 20231011
  Transmission Date: 20240110
  Serious: Yes (Other)
  Sender: FDA-Public Use
  Company Number: US-AMGEN-USASP2023176506

PATIENT

DRUGS (2)
  1. REPATHA [Suspect]
     Active Substance: EVOLOCUMAB
     Indication: Blood cholesterol increased
     Dosage: UNK
     Route: 065
  2. REPATHA [Suspect]
     Active Substance: EVOLOCUMAB
     Indication: Type IIa hyperlipidaemia

REACTIONS (11)
  - Dyspnoea [Unknown]
  - Palpitations [Unknown]
  - Oral discomfort [Unknown]
  - Tongue blistering [Unknown]
  - Lip blister [Unknown]
  - Gingival blister [Unknown]
  - Oesophageal pain [Unknown]
  - Oropharyngeal pain [Unknown]
  - Asthenia [Unknown]
  - Blood potassium decreased [Unknown]
  - Back pain [Unknown]
